FAERS Safety Report 21886690 (Version 1)
Quarter: 2023Q1

REPORT INFORMATION
  Report Type: Spontaneous
  Country: FR (occurrence: FR)
  Receive Date: 20230119
  Receipt Date: 20230119
  Transmission Date: 20230417
  Serious: Yes (Other)
  Sender: FDA-Public Use
  Company Number: FR-MYLANLABS-2023M1006257

PATIENT
  Age: 73 Year
  Sex: Female

DRUGS (1)
  1. AMLODIPINE BESYLATE [Suspect]
     Active Substance: AMLODIPINE BESYLATE
     Indication: Blood pressure increased
     Dosage: UNK
     Route: 065
     Dates: start: 20220816

REACTIONS (3)
  - Hepatic cytolysis [Unknown]
  - Polycythaemia [Unknown]
  - Ischaemic stroke [Unknown]

NARRATIVE: CASE EVENT DATE: 20220927
